FAERS Safety Report 5207867-8 (Version None)
Quarter: 2007Q1

REPORT INFORMATION
  Report Type: 
  Country: None (occurrence: None)
  Receive Date: 20070112
  Receipt Date: 20070105
  Transmission Date: 20070707
  Serious: Yes (Other)
  Sender: FDA-Public Use
  Company Number: US-PFIZER INC-2007002310

PATIENT
  Sex: Male
  Weight: 68 kg

DRUGS (3)
  1. ZOLOFT [Suspect]
     Indication: DEPRESSION
     Route: 048
  2. CHANTIX [Suspect]
     Dates: start: 20070105, end: 20070105
  3. SERTRALINE [Suspect]
     Indication: DEPRESSION
     Dosage: TEXT:UNKNOWN
     Dates: start: 20061001, end: 20060101

REACTIONS (3)
  - DEPRESSION [None]
  - DRUG ADMINISTRATION ERROR [None]
  - SUICIDAL BEHAVIOUR [None]
